FAERS Safety Report 7233589-8 (Version None)
Quarter: 2011Q1

REPORT INFORMATION
  Report Type: 
  Country: None (occurrence: None)
  Receive Date: 20110119
  Receipt Date: 20100615
  Transmission Date: 20110831
  Serious: Yes (Other)
  Sender: FDA-Public Use
  Company Number: US-PFIZER INC-2010075539

PATIENT
  Sex: Female
  Weight: 83 kg

DRUGS (9)
  1. FUROSEMIDE [Concomitant]
     Dosage: 20 MG, DAILY
  2. OXYCODONE [Concomitant]
     Dosage: 5 MG, 2X/DAY
  3. ALLEGRA [Concomitant]
     Dosage: 180 MG, DAILY
  4. SYNTHROID [Concomitant]
     Dosage: 112 UG,  DAILY
  5. LORAZEPAM [Concomitant]
     Dosage: 1 MG, UNK
  6. CO-Q-10 [Concomitant]
     Dosage: UNK, DAILY
  7. POTASSIUM [Concomitant]
     Dosage: 10 MEQ, DAILY
  8. AROMASIN [Suspect]
     Indication: BREAST CANCER
     Dosage: 25 MG, DAILY
     Route: 048
     Dates: start: 20100501
  9. VITAMIN E [Concomitant]
     Dosage: 400 UNITS, DAILY

REACTIONS (2)
  - WEIGHT INCREASED [None]
  - ARTHRALGIA [None]
